FAERS Safety Report 11894006 (Version 1)
Quarter: 2016Q1

REPORT INFORMATION
  Report Type: Report from Study
  Country: US (occurrence: US)
  Receive Date: 20160107
  Receipt Date: 20160107
  Transmission Date: 20160526
  Serious: Yes (Hospitalization)
  Sender: FDA-Public Use
  Company Number: US-ABBVIE-16K-163-1531517-00

PATIENT
  Age: 39 Year
  Sex: Male

DRUGS (2)
  1. HUMIRA [Suspect]
     Active Substance: ADALIMUMAB
     Indication: COLITIS ULCERATIVE
     Route: 058
     Dates: start: 201510
  2. IMURAN [Suspect]
     Active Substance: AZATHIOPRINE
     Indication: COLITIS ULCERATIVE
     Route: 048
     Dates: start: 201511, end: 201512

REACTIONS (7)
  - Erythema nodosum [Recovered/Resolved]
  - Rash [Recovered/Resolved]
  - Escherichia test positive [Recovered/Resolved]
  - Pyrexia [Recovering/Resolving]
  - Sepsis [Recovered/Resolved]
  - Urinary tract infection [Recovered/Resolved]
  - Prostatitis [Recovered/Resolved]

NARRATIVE: CASE EVENT DATE: 201512
